FAERS Safety Report 13353691 (Version 1)
Quarter: 2017Q1

REPORT INFORMATION
  Report Type: Spontaneous
  Country: US (occurrence: US)
  Receive Date: 20170319
  Receipt Date: 20170319
  Transmission Date: 20170429
  Serious: No
  Sender: FDA-Public Use
  Company Number: None

PATIENT
  Age: 5 Month
  Sex: Male
  Weight: 5.4 kg

DRUGS (6)
  1. OXYGEN. [Concomitant]
     Active Substance: OXYGEN
  2. LASIX [Concomitant]
     Active Substance: FUROSEMIDE
  3. NG TUBE [Concomitant]
  4. RANITIDINE. [Concomitant]
     Active Substance: RANITIDINE
  5. METOCLOPRAMIDE. [Suspect]
     Active Substance: METOCLOPRAMIDE
     Indication: GASTROINTESTINAL MOTILITY DISORDER
     Dosage: ?          OTHER STRENGTH:MG/ML;QUANTITY:0.5 ML;?
     Route: 048
     Dates: start: 20170308, end: 20170317
  6. SILDENAFIL. [Concomitant]
     Active Substance: SILDENAFIL

REACTIONS (4)
  - Muscle disorder [None]
  - Irritability [None]
  - Tremor [None]
  - Back disorder [None]

NARRATIVE: CASE EVENT DATE: 20160317
